FAERS Safety Report 4687831-8 (Version None)
Quarter: 2005Q2

REPORT INFORMATION
  Report Type: 
  Country: None (occurrence: None)
  Receive Date: 20050610
  Receipt Date: 20050610
  Transmission Date: 20051028
  Serious: Yes (Hospitalization)
  Sender: FDA-Public Use
  Company Number: None

PATIENT
  Sex: Female
  Weight: 60.2377 kg

DRUGS (9)
  1. GEMCITABINE   100MG/ML     LILLY [Suspect]
     Indication: PANCREATIC CARCINOMA
     Dosage: 1000MG/M2+     DAY 1 + 15   INTRAVENOU
     Route: 042
     Dates: start: 20050301, end: 20050509
  2. CISPLATIN [Suspect]
     Indication: PANCREATIC CARCINOMA
     Dosage: DAY 1 + 15    INTRAVENOU
     Route: 042
     Dates: start: 20050301, end: 20050509
  3. BEVACIZUMAB     25MG/ML    GENETECH [Suspect]
     Indication: PANCREATIC CARCINOMA
     Dosage: 10MG/KG   DAY 1 + 15 INTRAVENOU
     Route: 042
     Dates: start: 20050301, end: 20050509
  4. VICODIN [Concomitant]
  5. ARANESP [Concomitant]
  6. TOPROL-XL [Concomitant]
  7. COMPAZINE [Concomitant]
  8. LORAZEPAM [Concomitant]
  9. ASPIRIN [Concomitant]

REACTIONS (5)
  - APHASIA [None]
  - HYPERTENSION [None]
  - MENTAL STATUS CHANGES [None]
  - NAUSEA [None]
  - TRANSIENT ISCHAEMIC ATTACK [None]
